FAERS Safety Report 8269867-3 (Version None)
Quarter: 2012Q2

REPORT INFORMATION
  Report Type: 
  Country: None (occurrence: None)
  Receive Date: 20120410
  Receipt Date: 20120404
  Transmission Date: 20120825
  Serious: No
  Sender: FDA-Public Use
  Company Number: US-PFIZER INC-2012086141

PATIENT
  Sex: Female

DRUGS (2)
  1. NORGESTREL/ETHINYL ESTRADIOL [Suspect]
     Indication: OFF LABEL USE
     Dosage: UNK
  2. NORGESTREL/ETHINYL ESTRADIOL [Suspect]
     Indication: OVARIAN CYST

REACTIONS (1)
  - NAUSEA [None]
